FAERS Safety Report 5671064-2 (Version None)
Quarter: 2008Q1

REPORT INFORMATION
  Report Type: 
  Country: None (occurrence: None)
  Receive Date: 20080318
  Receipt Date: 20080311
  Transmission Date: 20080703
  Serious: Yes (Hospitalization)
  Sender: FDA-Public Use
  Company Number: US-ELI_LILLY_AND_COMPANY-US200803002189

PATIENT
  Sex: Male

DRUGS (4)
  1. HUMATROPE [Suspect]
     Indication: GROWTH HORMONE DEFICIENCY
     Dosage: UNK, UNKNOWN
     Dates: start: 20030101, end: 20080101
  2. SYNTHROID [Concomitant]
     Dosage: UNK, UNKNOWN
  3. MIRAPEX [Concomitant]
     Dosage: UNK, UNKNOWN
  4. HYDROCORTISONE [Concomitant]
     Dosage: UNK, UNKNOWN

REACTIONS (7)
  - ABDOMINAL PAIN [None]
  - ASTHENIA [None]
  - ASTHMA [None]
  - INTESTINAL OBSTRUCTION [None]
  - PARKINSON'S DISEASE [None]
  - SCAR [None]
  - UMBILICAL HERNIA [None]
